FAERS Safety Report 9549287 (Version 3)
Quarter: 2014Q2

REPORT INFORMATION
  Report Type: Report from Study
  Country: US (occurrence: US)
  Receive Date: 20130924
  Receipt Date: 20140630
  Transmission Date: 20141212
  Serious: Yes (Hospitalization, Other)
  Sender: FDA-Public Use
  Company Number: US-ALEXION PHARMACEUTICALS INC.-A201302381

PATIENT
  Sex: 0

DRUGS (1)
  1. SOLIRIS [Suspect]
     Indication: HAEMOLYTIC URAEMIC SYNDROME
     Dosage: UNK
     Route: 042

REACTIONS (17)
  - Unresponsive to stimuli [Unknown]
  - Convulsion [Unknown]
  - Platelet count decreased [Unknown]
  - Depressed level of consciousness [Unknown]
  - Mechanical ventilation [Recovering/Resolving]
  - Mental status changes [Unknown]
  - Confusional state [Unknown]
  - Amnesia [Unknown]
  - Dysarthria [Unknown]
  - Walking aid user [Not Recovered/Not Resolved]
  - Oedema [Unknown]
  - Dizziness [Unknown]
  - Anxiety [Unknown]
  - Abdominal pain [Unknown]
  - Diarrhoea [Unknown]
  - Pain [Unknown]
  - Fatigue [Unknown]
